FAERS Safety Report 8881775 (Version 2)
Quarter: 2012Q4

REPORT INFORMATION
  Report Type: Report from Study
  Country: US (occurrence: US)
  Receive Date: 20121105
  Receipt Date: 20121226
  Transmission Date: 20130627
  Serious: Yes (Hospitalization)
  Sender: FDA-Public Use
  Company Number: US-JNJFOC-20121016393

PATIENT
  Age: 70 None
  Sex: Female
  Weight: 47.17 kg

DRUGS (11)
  1. REMICADE [Suspect]
     Indication: RHEUMATOID ARTHRITIS
     Route: 042
     Dates: start: 201111, end: 2012
  2. METHOTREXATE [Concomitant]
     Indication: RHEUMATOID ARTHRITIS
     Route: 065
  3. PLAQUENIL [Concomitant]
     Indication: RHEUMATOID ARTHRITIS
     Route: 048
  4. AMITRIPTYLINE [Concomitant]
     Indication: SLEEP DISORDER THERAPY
     Route: 048
  5. AMITRIPTYLINE [Concomitant]
     Indication: FIBROMYALGIA
     Route: 048
  6. VITAMIN D [Concomitant]
     Route: 065
  7. CALCIUM [Concomitant]
     Route: 065
  8. VITAMIN C [Concomitant]
     Route: 065
  9. VITAMIN B COMPLEX [Concomitant]
     Route: 065
  10. FLAX SEED OIL [Concomitant]
     Route: 065
  11. FISH OIL [Concomitant]
     Route: 065

REACTIONS (7)
  - Venous injury [Not Recovered/Not Resolved]
  - Wound complication [Recovered/Resolved]
  - Wound haemorrhage [Recovered/Resolved]
  - Joint dislocation [Recovered/Resolved]
  - Infection [Not Recovered/Not Resolved]
  - Oedema peripheral [Unknown]
  - Neoplasm [Unknown]
